FAERS Safety Report 24055012 (Version 1)
Quarter: 2024Q3

REPORT INFORMATION
  Report Type: Spontaneous
  Country: US (occurrence: None)
  Receive Date: 20240703
  Receipt Date: 20240703
  Transmission Date: 20241017
  Serious: Yes (Hospitalization)
  Sender: Public
  Company Number: None

PATIENT
  Age: 23 Year
  Sex: Male
  Weight: 56.7 kg

DRUGS (7)
  1. ABILIFY [Suspect]
     Active Substance: ARIPIPRAZOLE
  2. VRAYLAR [Suspect]
     Active Substance: CARIPRAZINE
  3. QELBREE [Concomitant]
     Active Substance: VILOXAZINE HYDROCHLORIDE
  4. FLUOXETINE [Concomitant]
     Active Substance: FLUOXETINE HYDROCHLORIDE
  5. ADDERALL [Concomitant]
     Active Substance: AMPHETAMINE ASPARTATE\AMPHETAMINE SULFATE\DEXTROAMPHETAMINE SACCHARATE\DEXTROAMPHETAMINE SULFATE
  6. MEMANTINE [Concomitant]
     Active Substance: MEMANTINE
  7. IBUPROFEN [Concomitant]
     Active Substance: IBUPROFEN

REACTIONS (3)
  - Impulsive behaviour [None]
  - Gambling disorder [None]
  - Weight increased [None]

NARRATIVE: CASE EVENT DATE: 20240613
